FAERS Safety Report 4624224-3 (Version None)
Quarter: 2005Q1

REPORT INFORMATION
  Report Type: 
  Country: None (occurrence: None)
  Receive Date: 20050330
  Receipt Date: 20050330
  Transmission Date: 20050727
  Serious: No
  Sender: FDA-Public Use
  Company Number: None

PATIENT
  Age: 60 Year
  Sex: Female

DRUGS (1)
  1. CLOPIDOGREL [Suspect]
     Indication: STENT PLACEMENT

REACTIONS (5)
  - CARDIO-RESPIRATORY ARREST [None]
  - CORONARY ARTERY REOCCLUSION [None]
  - MEDICATION ERROR [None]
  - POST PROCEDURAL COMPLICATION [None]
  - TACHYCARDIA [None]
